FAERS Safety Report 4898101-7 (Version None)
Quarter: 2006Q1

REPORT INFORMATION
  Report Type: 
  Country: None (occurrence: None)
  Receive Date: 20060127
  Receipt Date: 20060109
  Transmission Date: 20060701
  Serious: Yes (Other)
  Sender: FDA-Public Use
  Company Number: TRP_0683_2006

PATIENT
  Age: 56 Year
  Sex: Male

DRUGS (5)
  1. RIBASPHERE [Suspect]
     Indication: HEPATITIS C
     Dosage: DF PO
     Route: 048
     Dates: start: 20050303
  2. PEG-INTRON [Suspect]
     Indication: HEPATITIS C
     Dosage: DF SC
     Route: 058
     Dates: start: 20050303
  3. ATENOLOL [Concomitant]
  4. LISINOPRIL [Concomitant]
  5. NIFEDIAC CC EXTENDED RELEASE [Concomitant]

REACTIONS (3)
  - CONDITION AGGRAVATED [None]
  - GOUT [None]
  - SYSTEMIC LUPUS ERYTHEMATOSUS [None]
